FAERS Safety Report 13409129 (Version 1)
Quarter: 2017Q2

REPORT INFORMATION
  Report Type: Spontaneous
  Country: US (occurrence: US)
  Receive Date: 20170406
  Receipt Date: 20170406
  Transmission Date: 20170830
  Serious: Yes (Death, Other)
  Sender: FDA-Public Use
  Company Number: None

PATIENT
  Age: 56 Year
  Sex: Female

DRUGS (1)
  1. DOXYCYCLINE 20MG [Suspect]
     Active Substance: DOXYCYCLINE
     Route: 048
     Dates: start: 2004, end: 2006

REACTIONS (2)
  - Gastrointestinal disorder [None]
  - Abdominal discomfort [None]

NARRATIVE: CASE EVENT DATE: 20061120
